FAERS Safety Report 23965183 (Version 2)
Quarter: 2024Q3

REPORT INFORMATION
  Report Type: Spontaneous
  Country: JP (occurrence: JP)
  Receive Date: 20240612
  Receipt Date: 20240812
  Transmission Date: 20241016
  Serious: Yes (Hospitalization, Other)
  Sender: SANOFI AVENTIS
  Company Number: JP-SA-2024SA169344

PATIENT
  Age: 80 Year
  Sex: Female
  Weight: 40 kg

DRUGS (2)
  1. FABRAZYME [Suspect]
     Active Substance: AGALSIDASE BETA
     Indication: Fabry^s disease
     Dosage: DAILY DOSE: 35 MG, QOW
     Route: 041
     Dates: start: 20210714, end: 20240119
  2. FABRAZYME [Suspect]
     Active Substance: AGALSIDASE BETA
     Indication: Fabry^s disease
     Dosage: DAILY DOSE: 5 MG, QOW
     Route: 041
     Dates: start: 20210714, end: 20240119

REACTIONS (4)
  - Cerebral infarction [Recovered/Resolved with Sequelae]
  - Disease progression [Recovered/Resolved with Sequelae]
  - Bedridden [Not Recovered/Not Resolved]
  - Gastrostomy [Unknown]

NARRATIVE: CASE EVENT DATE: 20240201
